FAERS Safety Report 22249828 (Version 1)
Quarter: 2023Q2

REPORT INFORMATION
  Report Type: Spontaneous
  Country: US (occurrence: None)
  Receive Date: 20230424
  Receipt Date: 20230424
  Transmission Date: 20230721
  Serious: Yes (Other)
  Sender: FDA-Public Use
  Company Number: None

PATIENT
  Age: 89 Year
  Sex: Female
  Weight: 65.7 kg

DRUGS (8)
  1. DILTIAZEM HYDROCHLORIDE [Suspect]
     Active Substance: DILTIAZEM HYDROCHLORIDE
     Indication: Atrial fibrillation
     Dosage: 1 CAPSULE TWICE A DAY ORAL?
     Route: 048
     Dates: start: 20230416, end: 20230421
  2. Metoprolol 50 mg (2 x daily) [Concomitant]
  3. Simvastatin 20 mg (1 x daily) [Concomitant]
  4. diltiazem HCL ER 120 mg (2 x daily) [Concomitant]
  5. 81 mg aspirin (1 x daily) [Concomitant]
  6. multivitamin (1 x daily) [Concomitant]
  7. Citrical Calcium 600mg(2 x daily) [Concomitant]
  8. Stool Softner (1x daily) [Concomitant]

REACTIONS (3)
  - Atrial fibrillation [None]
  - Symptom recurrence [None]
  - Product quality issue [None]

NARRATIVE: CASE EVENT DATE: 20230419
